FAERS Safety Report 24029994 (Version 1)
Quarter: 2024Q2

REPORT INFORMATION
  Report Type: Spontaneous
  Country: BE (occurrence: None)
  Receive Date: 20240628
  Receipt Date: 20240628
  Transmission Date: 20240716
  Serious: Yes (Other)
  Sender: FDA-Public Use
  Company Number: 2024A143859

PATIENT
  Age: 81 Year
  Sex: Male

DRUGS (4)
  1. DAPAGLIFLOZIN [Suspect]
     Active Substance: DAPAGLIFLOZIN
     Indication: Cardiac failure
     Route: 048
     Dates: start: 20240530
  2. BUMETANIDE [Concomitant]
     Active Substance: BUMETANIDE
  3. BENSERAZIDE\LEVODOPA [Concomitant]
     Active Substance: BENSERAZIDE\LEVODOPA
     Dosage: 250
  4. URO-VAXOM [Concomitant]

REACTIONS (3)
  - Device occlusion [Recovering/Resolving]
  - Device mechanical issue [Recovering/Resolving]
  - Device deposit issue [Recovering/Resolving]

NARRATIVE: CASE EVENT DATE: 20240601
